FAERS Safety Report 10903901 (Version 1)
Quarter: 2015Q1

REPORT INFORMATION
  Report Type: Spontaneous
  Country: CA (occurrence: None)
  Receive Date: 20150306
  Receipt Date: 20150306
  Transmission Date: 20150721
  Serious: Yes (Death)
  Sender: FDA-Public Use
  Company Number: CA-2015TEC0000008

PATIENT
  Age: 75 Year
  Sex: Male

DRUGS (7)
  1. PLASMA [Concomitant]
     Active Substance: HUMAN PLASMA
  2. CRYOPRECIPITATE (FACTOR I (FIBRINOGEN), FACTOR VIII (ANTIHAEMOPHILIC FACTOR), FACTOR XIII (FIBRIN STABILISING FACTOR), VON WILLEBRAND FACTOR) [Concomitant]
  3. PLATELET (DIPYRIDAMOLE) [Concomitant]
  4. VITAMIN K (PHYTOMENADIONE) [Concomitant]
  5. WARFARIN [Concomitant]
     Active Substance: WARFARIN
  6. HEPARIN SODIUM INJECTION [Suspect]
     Active Substance: HEPARIN SODIUM
     Indication: THROMBOSIS PROPHYLAXIS
  7. PROTHROMBINEX (FACTOR II (PROTHROMBIN), FACTOR IX COMPLEX HUMAN, FACTOR VII (PROCONVERTIN), FACTOR X (STUART PROWER FACTOR)) [Concomitant]

REACTIONS (3)
  - Heparin-induced thrombocytopenia [None]
  - Peripheral ischaemia [None]
  - Disseminated intravascular coagulation [None]
